FAERS Safety Report 10368621 (Version 1)
Quarter: 2014Q3

REPORT INFORMATION
  Report Type: Spontaneous
  Country: JP (occurrence: JP)
  Receive Date: 20140807
  Receipt Date: 20140807
  Transmission Date: 20150326
  Serious: Yes (Other)
  Sender: FDA-Public Use
  Company Number: PHHY2012JP133829

PATIENT

DRUGS (2)
  1. TASIGNA [Suspect]
     Active Substance: NILOTINIB
     Indication: CHRONIC MYELOID LEUKAEMIA
     Dates: end: 2010
  2. SPRYCEL [Suspect]
     Active Substance: DASATINIB

REACTIONS (3)
  - Anaemia [Recovering/Resolving]
  - Vision blurred [Recovering/Resolving]
  - Gastrointestinal haemorrhage [Recovering/Resolving]
